FAERS Safety Report 5796896-1 (Version None)
Quarter: 2008Q3

REPORT INFORMATION
  Report Type: 
  Country: None (occurrence: None)
  Receive Date: 20080701
  Receipt Date: 20080617
  Transmission Date: 20090109
  Serious: Yes (Hospitalization, Other)
  Sender: FDA-Public Use
  Company Number: US-ELI_LILLY_AND_COMPANY-US200804005182

PATIENT
  Sex: Female

DRUGS (2)
  1. FORTEO [Suspect]
     Indication: OSTEOPOROSIS
     Dosage: UNK, UNK
     Dates: start: 20071023, end: 20080529
  2. LEVOTHYROXINE SODIUM [Concomitant]

REACTIONS (9)
  - CATARACT [None]
  - CONSTIPATION [None]
  - FALL [None]
  - FLATULENCE [None]
  - GASTROINTESTINAL PAIN [None]
  - HIP FRACTURE [None]
  - MACULAR DEGENERATION [None]
  - RETINAL TEAR [None]
  - VISION BLURRED [None]
